FAERS Safety Report 6028710-3 (Version None)
Quarter: 2009Q1

REPORT INFORMATION
  Report Type: 
  Country: None (occurrence: None)
  Receive Date: 20090102
  Receipt Date: 20081226
  Transmission Date: 20090719
  Serious: Yes (Hospitalization)
  Sender: FDA-Public Use
  Company Number: SP02125

PATIENT
  Age: 75 Year
  Sex: Male

DRUGS (11)
  1. VISICOL [Suspect]
     Indication: COLONOSCOPY
     Dosage: (50 GM), ORAL
     Route: 048
     Dates: start: 20081031, end: 20081031
  2. SODIUM PICOSULFATE [Suspect]
     Indication: COLONOSCOPY
     Dosage: (10 MILLIGRAM/MILLILITERS), ORAL
     Route: 048
     Dates: start: 20081030, end: 20081030
  3. MOSAPRIDE CITRATE (TABLETS) [Concomitant]
  4. DAI-KENCHU-TO [Concomitant]
  5. CILOSTAZOL [Concomitant]
  6. ISOSORBIDE MONONITRATE [Concomitant]
  7. AZELNIDIPINE [Concomitant]
  8. MEXILENTINE HYDROCHLORIDE [Concomitant]
  9. CARVEDILOL [Concomitant]
  10. LOSARTAN POTASSIUM [Concomitant]
  11. PAROXETINE HCL [Concomitant]

REACTIONS (2)
  - COLITIS ISCHAEMIC [None]
  - LARGE INTESTINAL ULCER HAEMORRHAGE [None]
